FAERS Safety Report 6039259-6 (Version None)
Quarter: 2009Q1

REPORT INFORMATION
  Report Type: 
  Country: None (occurrence: None)
  Receive Date: 20090115
  Receipt Date: 20090107
  Transmission Date: 20090719
  Serious: Yes (Other)
  Sender: FDA-Public Use
  Company Number: PHHY2009BR00982

PATIENT
  Sex: Female
  Weight: 67 kg

DRUGS (1)
  1. FORASEQ [Suspect]
     Indication: BRONCHITIS
     Dosage: UNK
     Dates: start: 20081101

REACTIONS (6)
  - CATARACT OPERATION [None]
  - EYE DISORDER [None]
  - INFLUENZA [None]
  - RHINORRHOEA [None]
  - SNEEZING [None]
  - THROAT IRRITATION [None]
